FAERS Safety Report 17299466 (Version 1)
Quarter: 2020Q1

REPORT INFORMATION
  Report Type: Spontaneous
  Country: DE (occurrence: DE)
  Receive Date: 20200121
  Receipt Date: 20200121
  Transmission Date: 20200409
  Serious: Yes (Other)
  Sender: FDA-Public Use
  Company Number: DE-US-PROVELL PHARMACEUTICALS LLC-9140041

PATIENT
  Sex: Female
  Weight: 68 kg

DRUGS (1)
  1. EUTHYROX [Suspect]
     Active Substance: LEVOTHYROXINE SODIUM
     Indication: PRODUCT USED FOR UNKNOWN INDICATION
     Dates: start: 20191201

REACTIONS (4)
  - Dizziness [Unknown]
  - Somnolence [Unknown]
  - Muscular weakness [Unknown]
  - CSF pressure abnormal [Unknown]
